FAERS Safety Report 13953777 (Version 1)
Quarter: 2017Q3

REPORT INFORMATION
  Report Type: Spontaneous
  Country: US (occurrence: US)
  Receive Date: 20170908
  Receipt Date: 20170908
  Transmission Date: 20171128
  Serious: No
  Sender: FDA-Public Use
  Company Number: None

PATIENT
  Age: 55 Year
  Sex: Female

DRUGS (8)
  1. LISINOPRIL. [Concomitant]
     Active Substance: LISINOPRIL
  2. KENALOG [Suspect]
     Active Substance: TRIAMCINOLONE ACETONIDE
     Indication: BACK PAIN
     Route: 030
  3. CELEXA [Concomitant]
     Active Substance: CITALOPRAM HYDROBROMIDE
  4. AMOLDIPINE [Concomitant]
  5. OXYCODONE [Concomitant]
     Active Substance: OXYCODONE
  6. MORPHINE ER [Concomitant]
     Active Substance: MORPHINE
  7. BLACK COHOSH [Concomitant]
     Active Substance: BLACK COHOSH
  8. DOCUSATE [Concomitant]
     Active Substance: DOCUSATE

REACTIONS (5)
  - Loss of personal independence in daily activities [None]
  - Muscle spasms [None]
  - Flushing [None]
  - Heart rate irregular [None]
  - Mobility decreased [None]

NARRATIVE: CASE EVENT DATE: 20170812
